FAERS Safety Report 5441727-2 (Version None)
Quarter: 2007Q3

REPORT INFORMATION
  Report Type: 
  Country: None (occurrence: None)
  Receive Date: 20070904
  Receipt Date: 20070829
  Transmission Date: 20080115
  Serious: Yes (Other)
  Sender: FDA-Public Use
  Company Number: US-ASTRAZENECA-2006UW24442

PATIENT
  Age: 51 Year
  Sex: Female
  Weight: 97.7 kg

DRUGS (6)
  1. ARIMIDEX [Suspect]
     Indication: BREAST CANCER
     Route: 048
     Dates: start: 20040101
  2. COUMADIN [Concomitant]
     Route: 048
  3. MULTI-VITAMIN [Concomitant]
  4. ALLEGRA [Concomitant]
     Indication: ALLERGIC SINUSITIS
     Route: 048
     Dates: start: 20040901
  5. BONIVA [Concomitant]
     Indication: RESORPTION BONE INCREASED
     Route: 042
  6. BYETTA [Concomitant]
     Indication: DIABETES MELLITUS
     Route: 058

REACTIONS (7)
  - ARTHRALGIA [None]
  - BLOOD GLUCOSE INCREASED [None]
  - BONE DENSITY DECREASED [None]
  - CATARACT [None]
  - DIABETES MELLITUS [None]
  - GLYCOSYLATED HAEMOGLOBIN INCREASED [None]
  - RESORPTION BONE INCREASED [None]
